FAERS Safety Report 5251033-7 (Version None)
Quarter: 2007Q1

REPORT INFORMATION
  Report Type: 
  Country: None (occurrence: None)
  Receive Date: 20070228
  Receipt Date: 20060814
  Transmission Date: 20070707
  Serious: No
  Sender: FDA-Public Use
  Company Number: US-GLAXOSMITHKLINE-A0616534A

PATIENT
  Age: 48 Year
  Sex: Male

DRUGS (4)
  1. LAMICTAL [Suspect]
     Indication: EPILEPSY
     Dosage: 100MG TWICE PER DAY
     Route: 048
     Dates: start: 20060710
  2. CARBAMAZEPINE [Concomitant]
  3. HYPERTENSION MED [Concomitant]
  4. BACTRIM [Concomitant]

REACTIONS (3)
  - DIZZINESS [None]
  - LETHARGY [None]
  - VOMITING [None]
